FAERS Safety Report 25192400 (Version 2)
Quarter: 2025Q2

REPORT INFORMATION
  Report Type: Spontaneous
  Country: ES (occurrence: ES)
  Receive Date: 20250414
  Receipt Date: 20250423
  Transmission Date: 20250717
  Serious: Yes (Death, Other)
  Sender: BRACCO
  Company Number: ES-BRACCO-2025ES02315

PATIENT
  Age: 75 Year
  Sex: Male

DRUGS (14)
  1. IOMERON [Suspect]
     Active Substance: IOMEPROL
     Indication: Angiogram
     Route: 042
     Dates: start: 20250402, end: 20250402
  2. ASPIRIN [Concomitant]
     Active Substance: ASPIRIN
     Dosage: 1/24H
  3. CILOSTAZOL [Concomitant]
     Active Substance: CILOSTAZOL
     Dosage: 1/12H
  4. DAPAGLIFLOZIN PROPANEDIOL\METFORMIN HYDROCHLORIDE [Concomitant]
     Active Substance: DAPAGLIFLOZIN PROPANEDIOL\METFORMIN HYDROCHLORIDE
     Dosage: 1/12H
  5. Ezetimibe + atorvastatin/ rafarm [Concomitant]
     Dosage: 1/24H
  6. Hierro [Concomitant]
     Dosage: 1/24H
  7. Hydrochlorothiazide + enalapril [Concomitant]
     Dosage: 1/24H
  8. MIDAZOLAM [Concomitant]
     Active Substance: MIDAZOLAM
     Dosage: 1/24H
  9. NITROGLYCERIN [Concomitant]
     Active Substance: NITROGLYCERIN
     Dosage: UNK, SIW
     Route: 060
  10. OMEPRAZOLE [Concomitant]
     Active Substance: OMEPRAZOLE
     Dosage: 1/24H
  11. OZEMPIC [Concomitant]
     Active Substance: SEMAGLUTIDE
     Dosage: 1/7DAYS
  12. ACETAMINOPHEN [Concomitant]
     Active Substance: ACETAMINOPHEN
     Dosage: 1/24H
  13. PREGABALIN [Concomitant]
     Active Substance: PREGABALIN
     Dosage: 1/12H
  14. TAMSULOSIN HYDROCHLORIDE [Concomitant]
     Active Substance: TAMSULOSIN HYDROCHLORIDE
     Dosage: 1/24H

REACTIONS (3)
  - Cardio-respiratory arrest [Fatal]
  - Anaphylactic shock [Fatal]
  - Feeling hot [Unknown]

NARRATIVE: CASE EVENT DATE: 20250402
